FAERS Safety Report 12007419 (Version 1)
Quarter: 2016Q1

REPORT INFORMATION
  Report Type: Spontaneous
  Country: US (occurrence: US)
  Receive Date: 20160204
  Receipt Date: 20160204
  Transmission Date: 20160526
  Serious: Yes (Hospitalization, Other)
  Sender: FDA-Public Use
  Company Number: US-BAXTER-2016BAX003307

PATIENT
  Age: 29 Year
  Sex: Male

DRUGS (13)
  1. LISINOPRIL. [Concomitant]
     Active Substance: LISINOPRIL
     Indication: TACHYCARDIA
     Route: 065
  2. BUSULFAN [Suspect]
     Active Substance: BUSULFAN
     Indication: PROPHYLAXIS AGAINST GRAFT VERSUS HOST DISEASE
     Route: 065
     Dates: start: 20150212
  3. TACROLIMUS. [Suspect]
     Active Substance: TACROLIMUS
     Indication: PROPHYLAXIS AGAINST GRAFT VERSUS HOST DISEASE
     Route: 065
     Dates: start: 20150212
  4. BUDESONIDE. [Concomitant]
     Active Substance: BUDESONIDE
     Dosage: EXTENDED RELEASE
     Route: 048
     Dates: start: 20151210
  5. MAGNESIUM SULFATE. [Concomitant]
     Active Substance: MAGNESIUM SULFATE
     Indication: HYPOMAGNESAEMIA
     Dosage: EVERY TUESDAY AND FRIDAY AT HOME
     Route: 042
  6. BUDESONIDE. [Concomitant]
     Active Substance: BUDESONIDE
     Indication: PRODUCT USED FOR UNKNOWN INDICATION
     Route: 065
  7. LISINOPRIL. [Concomitant]
     Active Substance: LISINOPRIL
     Indication: HYPERTENSION
  8. CYTOXAN [Suspect]
     Active Substance: CYCLOPHOSPHAMIDE
     Indication: PROPHYLAXIS AGAINST GRAFT VERSUS HOST DISEASE
     Route: 065
     Dates: start: 20150212
  9. MAGNESIUM SULFATE. [Concomitant]
     Active Substance: MAGNESIUM SULFATE
     Dosage: DECREASE IN DOSE
     Route: 042
  10. AMBIEN [Concomitant]
     Active Substance: ZOLPIDEM TARTRATE
     Indication: INSOMNIA
     Route: 065
  11. METHOTREXATE [Suspect]
     Active Substance: METHOTREXATE
     Indication: PROPHYLAXIS AGAINST GRAFT VERSUS HOST DISEASE
     Route: 065
     Dates: start: 20150212
  12. METOPROLOL. [Concomitant]
     Active Substance: METOPROLOL
     Indication: HYPERTENSION
     Route: 065
  13. METOPROLOL. [Concomitant]
     Active Substance: METOPROLOL
     Indication: TACHYCARDIA

REACTIONS (36)
  - Graft versus host disease in gastrointestinal tract [Unknown]
  - Hypogammaglobulinaemia [Unknown]
  - Graft versus host disease in gastrointestinal tract [Recovering/Resolving]
  - Infection [Unknown]
  - Febrile neutropenia [Unknown]
  - Cough [Recovered/Resolved]
  - Bone marrow failure [Unknown]
  - Migraine [Unknown]
  - Rhinorrhoea [Not Recovered/Not Resolved]
  - Graft versus host disease in skin [Unknown]
  - Pain [Unknown]
  - Spinal compression fracture [Unknown]
  - Road traffic accident [Unknown]
  - Osteopenia [Unknown]
  - Sciatica [Unknown]
  - Rash pruritic [Recovering/Resolving]
  - Cushingoid [Unknown]
  - Wheezing [Not Recovered/Not Resolved]
  - Device related infection [Unknown]
  - Cytomegalovirus viraemia [Unknown]
  - Klebsiella sepsis [Unknown]
  - Catheter site dryness [Unknown]
  - Catheter site erythema [Unknown]
  - Musculoskeletal chest pain [Unknown]
  - Fall [Unknown]
  - Depression [Unknown]
  - Pain [Unknown]
  - Dizziness [Unknown]
  - Cellulitis [Unknown]
  - Dyspnoea [Unknown]
  - Condition aggravated [Unknown]
  - Pyrexia [Unknown]
  - Pancytopenia [Unknown]
  - Catheter site related reaction [Unknown]
  - Muscle spasms [Unknown]
  - Asthenia [Not Recovered/Not Resolved]

NARRATIVE: CASE EVENT DATE: 20150306
